FAERS Safety Report 10582671 (Version 2)
Quarter: 2014Q4

REPORT INFORMATION
  Report Type: Spontaneous
  Country: CA (occurrence: CA)
  Receive Date: 20141113
  Receipt Date: 20141113
  Transmission Date: 20150529
  Serious: Yes (Other)
  Sender: FDA-Public Use
  Company Number: CA-009507513-1407CAN000393

PATIENT
  Age: 53 Year
  Sex: Male

DRUGS (8)
  1. VIAGRA [Concomitant]
     Active Substance: SILDENAFIL CITRATE
  2. MORPHINE [Concomitant]
     Active Substance: MORPHINE
     Route: 048
  3. PEGASYS [Suspect]
     Active Substance: PEGINTERFERON ALFA-2A
     Indication: CHRONIC HEPATITIS C
     Dosage: 180 MICROGRAM / 0.5 PRE-FILLED SYRINGE
     Route: 058
     Dates: start: 20140522, end: 2014
  4. GABAPENTIN. [Concomitant]
     Active Substance: GABAPENTIN
     Dosage: UNK
  5. INDOMETHACIN. [Concomitant]
     Active Substance: INDOMETHACIN
  6. VICTRELIS [Suspect]
     Active Substance: BOCEPREVIR
     Indication: CHRONIC HEPATITIS C
     Dosage: 800 MG, 3/DAY
     Route: 048
     Dates: start: 20140619, end: 2014
  7. COPEGUS [Suspect]
     Active Substance: RIBAVIRIN
     Indication: CHRONIC HEPATITIS C
     Dosage: 42 TABLET / WEEK = 1200 MG/DAY
     Route: 048
     Dates: start: 20140522, end: 2014
  8. SOF-LAX [Concomitant]

REACTIONS (4)
  - Insomnia [Unknown]
  - Nausea [Unknown]
  - Abdominal pain upper [Unknown]
  - Testis cancer [Unknown]

NARRATIVE: CASE EVENT DATE: 201406
